FAERS Safety Report 6420977-2 (Version None)
Quarter: 2009Q4

REPORT INFORMATION
  Report Type: 
  Country: None (occurrence: None)
  Receive Date: 20091028
  Receipt Date: 20091013
  Transmission Date: 20100525
  Serious: Yes (Hospitalization)
  Sender: FDA-Public Use
  Company Number: 2009-4242

PATIENT
  Sex: Male

DRUGS (2)
  1. APOKYN [Suspect]
     Indication: PARKINSON'S DISEASE
     Dosage: (0.2 ML)
  2. TIGAN (TRMETHOBENZAMIDE HYDROCHLORIDE) [Concomitant]

REACTIONS (4)
  - COLON OPERATION [None]
  - FALL [None]
  - HIP FRACTURE [None]
  - VOMITING [None]
